FAERS Safety Report 8074141-4 (Version None)
Quarter: 2011Q4

REPORT INFORMATION
  Report Type: 
  Country: None (occurrence: None)
  Receive Date: 20111221
  Receipt Date: 20110513
  Transmission Date: 20120403
  Serious: Yes (Other)
  Sender: FDA-Public Use
  Company Number: PHHY2011US22916

PATIENT
  Age: 78 Year
  Sex: Female
  Weight: 84.1 kg

DRUGS (11)
  1. DEXAMETHASONE [Concomitant]
  2. EXJADE [Suspect]
     Indication: MULTIPLE MYELOMA
     Dosage: 1750 MG, QD, ORAL
     Route: 048
     Dates: start: 20100706, end: 20101012
  3. EXJADE [Suspect]
     Indication: IRON OVERLOAD
     Dosage: 1750 MG, QD, ORAL
     Route: 048
     Dates: start: 20100706, end: 20101012
  4. ATENOLOL [Concomitant]
  5. CYTOXAN [Concomitant]
  6. TRAMADOL HCL [Concomitant]
  7. ADVIL (MEFENAMIC ACID) [Concomitant]
  8. BORTEZOMIB [Concomitant]
  9. ARANESP [Concomitant]
  10. ACYCLOVIR [Concomitant]
  11. LOTENSIN HCT (BENAZEPRIL HYDROCHLORIDE, HYDROCHLOROTHIAZIDE) [Concomitant]

REACTIONS (6)
  - ASTHENIA [None]
  - DIZZINESS [None]
  - BLOOD CREATININE INCREASED [None]
  - SERUM FERRITIN INCREASED [None]
  - COUGH [None]
  - ECCHYMOSIS [None]
